FAERS Safety Report 9351426 (Version 1)
Quarter: 2013Q2

REPORT INFORMATION
  Report Type: Spontaneous
  Country: DE (occurrence: DE)
  Receive Date: 20130617
  Receipt Date: 20130617
  Transmission Date: 20140414
  Serious: Yes (Other)
  Sender: FDA-Public Use
  Company Number: DE-WATSON-2013-10164

PATIENT
  Age: 70 Year
  Sex: Male

DRUGS (6)
  1. DEXAMETHASONE (UNKNOWN) [Suspect]
     Indication: HORMONE-REFRACTORY PROSTATE CANCER
     Dosage: 1.5 MG, DAILY
     Route: 065
     Dates: end: 200904
  2. DEXAMETHASONE (UNKNOWN) [Suspect]
     Indication: PROSTATE CANCER METASTATIC
     Dosage: 1.5 MG, DAILY
     Route: 065
     Dates: start: 2009, end: 201003
  3. CELECOXIB [Concomitant]
     Indication: HORMONE-REFRACTORY PROSTATE CANCER
     Dosage: 200 MG, BID
     Route: 065
  4. CELECOXIB [Concomitant]
     Indication: PROSTATE CANCER METASTATIC
  5. LENALIDOMIDE [Concomitant]
     Indication: HORMONE-REFRACTORY PROSTATE CANCER
     Dosage: 15 MG, DAILY
     Route: 065
  6. LENALIDOMIDE [Concomitant]
     Indication: PROSTATE CANCER METASTATIC

REACTIONS (2)
  - Cushing^s syndrome [Unknown]
  - Furuncle [Unknown]
